FAERS Safety Report 15401220 (Version 1)
Quarter: 2018Q3

REPORT INFORMATION
  Report Type: Spontaneous
  Country: US (occurrence: US)
  Receive Date: 20180914
  Receipt Date: 20180914
  Transmission Date: 20181010
  Serious: No
  Sender: FDA-Public Use
  Company Number: None

PATIENT
  Age: 68 Year
  Sex: Female
  Weight: 54.43 kg

DRUGS (8)
  1. BIOTIN [Concomitant]
     Active Substance: BIOTIN
  2. CALCIUM [Concomitant]
     Active Substance: CALCIUM
  3. SOOLANTRA [Suspect]
     Active Substance: IVERMECTIN
     Indication: PAPULOPUSTULAR ROSACEA
     Dosage: ?          QUANTITY:1 % PERCENT;?
     Route: 061
     Dates: start: 20180121, end: 20180826
  4. ESTRADIOL TRANSDERMAL SYSTEM [Concomitant]
     Active Substance: ESTRADIOL
  5. PANTOPRAZOLE [Concomitant]
     Active Substance: PANTOPRAZOLE
  6. MULTIVITAMIN [Concomitant]
     Active Substance: VITAMINS
  7. ASA [Concomitant]
     Active Substance: ASPIRIN
  8. MANGESIUM [Concomitant]

REACTIONS (1)
  - Alopecia [None]

NARRATIVE: CASE EVENT DATE: 20180301
